FAERS Safety Report 6338544-8 (Version None)
Quarter: 2009Q3

REPORT INFORMATION
  Report Type: 
  Country: None (occurrence: None)
  Receive Date: 20090901
  Receipt Date: 20090821
  Transmission Date: 20100115
  Serious: Yes (Other)
  Sender: FDA-Public Use
  Company Number: 2009AL004402

PATIENT
  Age: 72 Year
  Sex: Male

DRUGS (6)
  1. NAPROXEN DELAYED-RELEASE TABLETS, 500 MG [Suspect]
     Indication: RHEUMATOID ARTHRITIS
     Dosage: 500 MG;BID;PO
     Route: 048
     Dates: start: 19970101
  2. PREDNISOLONE [Concomitant]
  3. ETANERCEPT [Concomitant]
  4. ALENDRONIC ACID [Concomitant]
  5. OMEPRAZOLE [Concomitant]
  6. ZYLORIC [Concomitant]

REACTIONS (5)
  - ABNORMAL FAECES [None]
  - CONDITION AGGRAVATED [None]
  - DIVERTICULITIS [None]
  - HAEMATOCHEZIA [None]
  - RECTAL HAEMORRHAGE [None]
